FAERS Safety Report 5973089-6 (Version None)
Quarter: 2008Q4

REPORT INFORMATION
  Report Type: 
  Country: None (occurrence: None)
  Receive Date: 20081201
  Receipt Date: 20081119
  Transmission Date: 20090506
  Serious: Yes (Hospitalization, Disabling, Other)
  Sender: FDA-Public Use
  Company Number: US-ROCHE-394188

PATIENT
  Sex: Male
  Weight: 66.2 kg

DRUGS (3)
  1. ACCUTANE [Suspect]
     Indication: ACNE
     Dosage: 20MG CAPSULES.  TWO TAKEN IN THE MORNING AND ONE IN THE EVENING.
     Route: 048
     Dates: start: 19990806, end: 19991130
  2. ACCUTANE [Suspect]
     Route: 048
     Dates: start: 19991201, end: 19991229
  3. ACCUTANE [Suspect]
     Route: 048
     Dates: start: 20020602, end: 20021203

REACTIONS (14)
  - APPENDICECTOMY [None]
  - CROHN'S DISEASE [None]
  - DEPRESSION [None]
  - DERMATITIS [None]
  - GASTROINTESTINAL DISORDER [None]
  - HEPATIC CYST [None]
  - INFLAMMATORY BOWEL DISEASE [None]
  - INTESTINAL HAEMORRHAGE [None]
  - LEUKOCYTOSIS [None]
  - LIP DRY [None]
  - MULTI-ORGAN DISORDER [None]
  - RECTAL HAEMORRHAGE [None]
  - RENAL CYST [None]
  - SKIN HYPERPIGMENTATION [None]
